FAERS Safety Report 20091310 (Version 2)
Quarter: 2021Q4

REPORT INFORMATION
  Report Type: Spontaneous
  Country: US (occurrence: US)
  Receive Date: 20211119
  Receipt Date: 20211207
  Transmission Date: 20220304
  Serious: No
  Sender: FDA-Public Use
  Company Number: US-LUPIN PHARMACEUTICALS INC.-2021-22589

PATIENT
  Sex: Male

DRUGS (2)
  1. LISINOPRIL [Suspect]
     Active Substance: LISINOPRIL
     Indication: Product used for unknown indication
     Dosage: UNK, SMALLER MEDICATION
     Route: 065
  2. LISINOPRIL [Suspect]
     Active Substance: LISINOPRIL
     Dosage: UNK, LARGER TABLETS
     Route: 065

REACTIONS (3)
  - Chest pain [Unknown]
  - Dyspnoea [Unknown]
  - Drug hypersensitivity [Unknown]
